FAERS Safety Report 4918970-1 (Version None)
Quarter: 2006Q1

REPORT INFORMATION
  Report Type: 
  Country: None (occurrence: None)
  Receive Date: 20060222
  Receipt Date: 20060216
  Transmission Date: 20060701
  Serious: Yes (Hospitalization)
  Sender: FDA-Public Use
  Company Number: FR-GLAXOSMITHKLINE-B0412810A

PATIENT
  Age: 46 Year
  Sex: Male
  Weight: 82 kg

DRUGS (10)
  1. AUGMENTIN '125' [Suspect]
     Dosage: 6G PER DAY
     Route: 042
     Dates: start: 20051120, end: 20051124
  2. LASILIX [Suspect]
     Dosage: 40MG PER DAY
     Route: 042
     Dates: start: 20051121, end: 20051126
  3. PERFALGAN [Suspect]
     Dosage: 4G PER DAY
     Route: 042
     Dates: start: 20051118, end: 20051124
  4. LOXEN [Suspect]
     Route: 042
     Dates: start: 20051121, end: 20051129
  5. DIPRIVAN [Suspect]
     Dosage: 180MG UNKNOWN
     Route: 042
     Dates: start: 20051120, end: 20051122
  6. OMEPRAZOLE [Suspect]
     Dosage: 40MG PER DAY
     Route: 042
     Dates: start: 20051115, end: 20051126
  7. MIDAZOLAM HCL [Concomitant]
     Route: 042
     Dates: start: 20051115, end: 20051201
  8. MORPHINE [Concomitant]
     Route: 042
     Dates: start: 20051120, end: 20051206
  9. LOVENOX [Concomitant]
     Route: 065
     Dates: start: 20051124, end: 20051208
  10. GENTAMYCIN SULFATE [Concomitant]
     Dosage: 200MG PER DAY
     Route: 065
     Dates: start: 20051120, end: 20051122

REACTIONS (4)
  - BLOOD BILIRUBIN INCREASED [None]
  - HEPATIC ENZYME INCREASED [None]
  - HEPATIC HAEMATOMA [None]
  - PERITONEAL EFFUSION [None]
